FAERS Safety Report 17437894 (Version 1)
Quarter: 2020Q1

REPORT INFORMATION
  Report Type: Spontaneous
  Country: FR (occurrence: FR)
  Receive Date: 20200219
  Receipt Date: 20200219
  Transmission Date: 20200409
  Serious: Yes (Other)
  Sender: FDA-Public Use
  Company Number: FR-TAKEDA-2020TUS010188

PATIENT
  Sex: Female

DRUGS (2)
  1. ENTYVIO [Suspect]
     Active Substance: VEDOLIZUMAB
     Indication: COLITIS
  2. ENTYVIO [Suspect]
     Active Substance: VEDOLIZUMAB
     Indication: ENTEROCOLITIS HAEMORRHAGIC
     Dosage: 300 MILLIGRAM
     Route: 065

REACTIONS (1)
  - Peliosis hepatis [Recovered/Resolved]
